FAERS Safety Report 4366985-7 (Version None)
Quarter: 2004Q2

REPORT INFORMATION
  Report Type: 
  Country: None (occurrence: None)
  Receive Date: 20040527
  Receipt Date: 20040527
  Transmission Date: 20050107
  Serious: Yes (Other)
  Sender: FDA-Public Use
  Company Number: None

PATIENT
  Age: 30 Year
  Sex: Female
  Weight: 61.2356 kg

DRUGS (1)
  1. TRINESSA WATSON PHARMA [Suspect]
     Indication: ORAL CONTRACEPTION
     Dosage: 1 TABLET ONCE DAILY ORAL
     Route: 048
     Dates: start: 20040502, end: 20040526

REACTIONS (1)
  - METRORRHAGIA [None]
